FAERS Safety Report 4653324-7 (Version None)
Quarter: 2005Q2

REPORT INFORMATION
  Report Type: 
  Country: None (occurrence: None)
  Receive Date: 20050505
  Receipt Date: 20050322
  Transmission Date: 20051028
  Serious: Yes (Hospitalization, Other)
  Sender: FDA-Public Use
  Company Number: 200512876GDDC

PATIENT
  Sex: Female

DRUGS (3)
  1. KETEK [Suspect]
     Indication: PNEUMONIA PRIMARY ATYPICAL
     Route: 048
     Dates: start: 20050311, end: 20050315
  2. SYMBICORT [Concomitant]
     Indication: PNEUMONIA PRIMARY ATYPICAL
     Route: 055
     Dates: start: 20050311, end: 20050325
  3. ACCUTANE [Concomitant]
     Indication: ACNE
     Dosage: DOSE: UNK
     Route: 048

REACTIONS (7)
  - HEPATIC ENZYME INCREASED [None]
  - JAUNDICE [None]
  - NEPHRITIS INTERSTITIAL [None]
  - PRURITUS [None]
  - PYREXIA [None]
  - RASH [None]
  - URTICARIA [None]
